FAERS Safety Report 17869210 (Version 4)
Quarter: 2021Q2

REPORT INFORMATION
  Report Type: Report from Study
  Country: None (occurrence: US)
  Receive Date: 20200608
  Receipt Date: 20210402
  Transmission Date: 20210717
  Serious: No
  Sender: FDA-Public Use
  Company Number: US-ABBVIE-20K-163-3348971-00

PATIENT
  Age: 64 Year
  Sex: Male

DRUGS (2)
  1. HUMIRA [Suspect]
     Active Substance: ADALIMUMAB
     Indication: PSORIATIC ARTHROPATHY
     Route: 058
     Dates: start: 20200313, end: 20200626
  2. HUMIRA [Suspect]
     Active Substance: ADALIMUMAB
     Route: 058
     Dates: start: 2020, end: 202102

REACTIONS (23)
  - Gait disturbance [Recovered/Resolved]
  - Neck pain [Unknown]
  - Weight decreased [Unknown]
  - Back pain [Not Recovered/Not Resolved]
  - Loss of personal independence in daily activities [Not Recovered/Not Resolved]
  - Swelling [Recovered/Resolved]
  - Rash erythematous [Not Recovered/Not Resolved]
  - Psoriasis [Recovering/Resolving]
  - Arthralgia [Recovering/Resolving]
  - Tooth extraction [Unknown]
  - Abdominal discomfort [Unknown]
  - Insomnia [Recovering/Resolving]
  - Nail bed bleeding [Unknown]
  - Musculoskeletal stiffness [Recovered/Resolved]
  - Joint range of motion decreased [Not Recovered/Not Resolved]
  - Impaired self-care [Not Recovered/Not Resolved]
  - Musculoskeletal stiffness [Not Recovered/Not Resolved]
  - Therapeutic product effect decreased [Unknown]
  - Onychoclasis [Unknown]
  - Thirst [Not Recovered/Not Resolved]
  - Neck pain [Recovered/Resolved]
  - Post procedural infection [Recovered/Resolved]
  - Skin papilloma [Unknown]

NARRATIVE: CASE EVENT DATE: 2020
